FAERS Safety Report 14666325 (Version 1)
Quarter: 2018Q1

REPORT INFORMATION
  Report Type: Spontaneous
  Country: US (occurrence: US)
  Receive Date: 20180320
  Receipt Date: 20180320
  Transmission Date: 20180509
  Serious: No
  Sender: FDA-Public Use
  Company Number: None

PATIENT
  Age: 56 Year
  Sex: Female

DRUGS (7)
  1. ITRACONAZOLE 100 MG [Concomitant]
     Dates: start: 20180220, end: 20180221
  2. QVAR [Concomitant]
     Active Substance: BECLOMETHASONE DIPROPIONATE
     Dates: start: 20170207, end: 20171030
  3. LOSARTAN. [Suspect]
     Active Substance: LOSARTAN
     Indication: HYPERTENSION
     Route: 048
  4. HCTZ 25 MG [Concomitant]
     Dates: start: 20170927, end: 20180317
  5. ALPRAZOLAM 0.5 MG [Concomitant]
     Active Substance: ALPRAZOLAM
     Dates: start: 20170807, end: 20171016
  6. DOXYCYCLINE. [Concomitant]
     Active Substance: DOXYCYCLINE
     Dates: start: 20180212, end: 20180222
  7. POTASSIUM CL 10 MEQ TABLET [Concomitant]
     Dates: start: 20170807, end: 20171209

REACTIONS (2)
  - Palpitations [None]
  - Blood pressure increased [None]

NARRATIVE: CASE EVENT DATE: 20171016
